FAERS Safety Report 6838224-6 (Version None)
Quarter: 2010Q3

REPORT INFORMATION
  Report Type: 
  Country: None (occurrence: None)
  Receive Date: 20100713
  Receipt Date: 20070606
  Transmission Date: 20110219
  Serious: No
  Sender: FDA-Public Use
  Company Number: US-PFIZER INC-2007047681

PATIENT
  Sex: Female
  Weight: 79.4 kg

DRUGS (2)
  1. CHANTIX [Suspect]
     Indication: SMOKING CESSATION THERAPY
     Dates: start: 20070514
  2. NEXIUM [Suspect]
     Indication: ABDOMINAL DISCOMFORT
     Dates: start: 20070514

REACTIONS (2)
  - NAUSEA [None]
  - STRESS [None]
